FAERS Safety Report 9656140 (Version 2)
Quarter: 2013Q4

REPORT INFORMATION
  Report Type: Report from Study
  Country: JP (occurrence: JP)
  Receive Date: 20131030
  Receipt Date: 20131030
  Transmission Date: 20140711
  Serious: Yes (Other)
  Sender: FDA-Public Use
  Company Number: PHHY2012JP115227

PATIENT
  Age: 33 Year
  Sex: Male

DRUGS (4)
  1. FTY 720 [Suspect]
     Indication: RELAPSING-REMITTING MULTIPLE SCLEROSIS
     Dosage: 0.5 MG, QD
     Route: 048
     Dates: start: 20120619, end: 20120829
  2. FLUNITRAZEPAM [Concomitant]
     Dosage: 0.5 MG, PRN
     Route: 048
  3. HALRACK [Concomitant]
     Dosage: 0.375 MG, PRN
     Route: 048
  4. LYRICA [Concomitant]
     Dosage: 150 MG, UNK
     Route: 048

REACTIONS (1)
  - Hepatic function abnormal [Recovering/Resolving]
